FAERS Safety Report 15604481 (Version 5)
Quarter: 2019Q2

REPORT INFORMATION
  Report Type: Report from Study
  Country: US (occurrence: US)
  Receive Date: 20181110
  Receipt Date: 20190417
  Transmission Date: 20190711
  Serious: Yes (Hospitalization, Other)
  Sender: FDA-Public Use
  Company Number: PHEH2018US046555

PATIENT
  Sex: Female

DRUGS (1)
  1. AZOPT [Suspect]
     Active Substance: BRINZOLAMIDE
     Indication: PRODUCT USED FOR UNKNOWN INDICATION
     Route: 065

REACTIONS (8)
  - Cataract [Unknown]
  - Drug hypersensitivity [Unknown]
  - Glaucoma [Unknown]
  - Hypertension [Unknown]
  - Mobility decreased [Unknown]
  - Accident [Unknown]
  - Rib fracture [Unknown]
  - Fall [Unknown]
